FAERS Safety Report 14926298 (Version 1)
Quarter: 2018Q2

REPORT INFORMATION
  Report Type: Spontaneous
  Country: US (occurrence: US)
  Receive Date: 20180523
  Receipt Date: 20180523
  Transmission Date: 20180711
  Serious: No
  Sender: FDA-Public Use
  Company Number: US-ELI_LILLY_AND_COMPANY-US201804012216

PATIENT
  Age: 70 Year
  Sex: Female

DRUGS (1)
  1. TRULICITY [Suspect]
     Active Substance: DULAGLUTIDE
     Indication: DIABETES MELLITUS
     Dosage: UNK, UNKNOWN
     Route: 065
     Dates: start: 2016, end: 201804

REACTIONS (6)
  - Blood glucose increased [Unknown]
  - Feeling jittery [Unknown]
  - Insomnia [Unknown]
  - Night sweats [Unknown]
  - Stress [Unknown]
  - Pollakiuria [Unknown]

NARRATIVE: CASE EVENT DATE: 201802
